FAERS Safety Report 11637908 (Version 1)
Quarter: 2015Q4

REPORT INFORMATION
  Report Type: Spontaneous
  Country: US (occurrence: US)
  Receive Date: 20151016
  Receipt Date: 20151016
  Transmission Date: 20160304
  Serious: Yes (Death)
  Sender: FDA-Public Use
  Company Number: US-VERTEX PHARMACEUTICALS-2015-004475

PATIENT
  Age: 33 Year
  Sex: Male

DRUGS (7)
  1. KALYDECO [Suspect]
     Active Substance: IVACAFTOR
     Indication: CYSTIC FIBROSIS
     Dosage: 150 MG, BID
     Route: 048
     Dates: start: 20140107, end: 20150209
  2. COLISTIN [Concomitant]
     Active Substance: COLISTIN
  3. TOBI [Concomitant]
     Active Substance: TOBRAMYCIN
     Dosage: 1125 MG, BID
     Dates: start: 20140129, end: 20150216
  4. XOPENEX [Concomitant]
     Active Substance: LEVALBUTEROL HYDROCHLORIDE
  5. PREVACID [Concomitant]
     Active Substance: LANSOPRAZOLE
  6. PULMOZYME [Concomitant]
     Active Substance: DORNASE ALFA
  7. ZENPEP [Concomitant]
     Active Substance: PANCRELIPASE\PANCRELIPASE AMYLASE\PANCRELIPASE LIPASE\PANCRELIPASE PROTEASE

REACTIONS (1)
  - Death [Fatal]

NARRATIVE: CASE EVENT DATE: 20150906
